FAERS Safety Report 19991840 (Version 1)
Quarter: 2021Q4

REPORT INFORMATION
  Report Type: Spontaneous
  Country: US (occurrence: US)
  Receive Date: 20211025
  Receipt Date: 20211025
  Transmission Date: 20220303
  Serious: Yes (Hospitalization, Other)
  Sender: FDA-Public Use
  Company Number: US-NOVARTISPH-NVSC2021US234732

PATIENT
  Sex: Female

DRUGS (1)
  1. ZOLGENSMA [Suspect]
     Active Substance: ONASEMNOGENE ABEPARVOVEC-XIOI
     Indication: Product used for unknown indication
     Dosage: 1 UNK
     Route: 065

REACTIONS (7)
  - Dyspnoea [Unknown]
  - Pneumonia [Unknown]
  - Pyrexia [Unknown]
  - Respiratory arrest [Unknown]
  - Pneumothorax [Unknown]
  - Respiratory syncytial virus test positive [Unknown]
  - Vomiting [Unknown]
